FAERS Safety Report 8511451-8 (Version None)
Quarter: 2012Q3

REPORT INFORMATION
  Report Type: 
  Country: None (occurrence: None)
  Receive Date: 20120716
  Receipt Date: 20120712
  Transmission Date: 20120928
  Serious: Yes (Life-Threatening, Hospitalization)
  Sender: FDA-Public Use
  Company Number: DE-AMGEN-DEUSP2012043106

PATIENT
  Age: 29 Year
  Sex: Female
  Weight: 50 kg

DRUGS (1)
  1. ARANESP [Suspect]
     Indication: NEPHROGENIC ANAEMIA
     Dosage: 60 MUG, QD
     Route: 042
     Dates: start: 20111228, end: 20111228

REACTIONS (6)
  - LARYNGEAL OEDEMA [None]
  - RETCHING [None]
  - TACHYCARDIA [None]
  - BLOOD PRESSURE DECREASED [None]
  - DIARRHOEA [None]
  - ANAPHYLACTIC REACTION [None]
